FAERS Safety Report 6463893-2 (Version None)
Quarter: 2009Q4

REPORT INFORMATION
  Report Type: 
  Country: None (occurrence: None)
  Receive Date: 20091110
  Receipt Date: 20091006
  Transmission Date: 20100525
  Serious: No
  Sender: FDA-Public Use
  Company Number: 1000009291

PATIENT
  Age: 57 Year
  Sex: Female

DRUGS (7)
  1. SAVELLA [Suspect]
     Indication: FIBROMYALGIA
     Dosage: 12.5 MG (12.5 MG, 1 IN 1 D), ORAL
     Route: 048
     Dates: start: 20090927, end: 20090927
  2. ACTONEL [Concomitant]
  3. HYDROCHLOROTHIAZIDE [Concomitant]
  4. TYLENOL (CAPLET) [Concomitant]
  5. IBUPROFEN [Concomitant]
  6. VICODIN [Concomitant]
  7. CITRACAL [Concomitant]

REACTIONS (3)
  - HOT FLUSH [None]
  - HYPERHIDROSIS [None]
  - INSOMNIA [None]
